FAERS Safety Report 4330409-6 (Version None)
Quarter: 2004Q1

REPORT INFORMATION
  Report Type: 
  Country: None (occurrence: None)
  Receive Date: 20040330
  Receipt Date: 20021113
  Transmission Date: 20041129
  Serious: Yes (Hospitalization)
  Sender: FDA-Public Use
  Company Number: 2002IC000322

PATIENT
  Age: 59 Year
  Sex: Male

DRUGS (9)
  1. FLUOROURACIL [Suspect]
     Indication: GASTRIC CANCER
     Dosage: 940 MG; INTRAVENOUS
     Route: 042
     Dates: start: 20010116, end: 20010220
  2. ISOVORIN [Suspect]
     Indication: GASTRIC CANCER
     Dosage: 390 MG; INTRAVENOUS
     Route: 042
     Dates: start: 20010116, end: 20010220
  3. ACINON [Concomitant]
  4. LOXONIN [Concomitant]
  5. ALLOID G [Concomitant]
  6. AMOBAN [Concomitant]
  7. NAUZELIN [Concomitant]
  8. PELTAZON [Concomitant]
  9. LOPEMIN [Concomitant]

REACTIONS (3)
  - BONE MARROW DEPRESSION [None]
  - DIARRHOEA [None]
  - HYPONATRAEMIA [None]
